FAERS Safety Report 11214656 (Version 1)
Quarter: 2015Q2

REPORT INFORMATION
  Report Type: Spontaneous
  Country: US (occurrence: None)
  Receive Date: 20150608
  Receipt Date: 20150608
  Transmission Date: 20150821
  Serious: No
  Sender: FDA-Public Use
  Company Number: 2015TUS002596

PATIENT
  Sex: Female

DRUGS (1)
  1. BRINTELLIX [Suspect]
     Active Substance: VORTIOXETINE HYDROBROMIDE
     Indication: PRODUCT USED FOR UNKNOWN INDICATION
     Dates: start: 20150215

REACTIONS (5)
  - Pyrexia [None]
  - Flushing [None]
  - Hyperhidrosis [None]
  - Palpitations [None]
  - Nausea [None]

NARRATIVE: CASE EVENT DATE: 20150215
